FAERS Safety Report 8512450-2 (Version None)
Quarter: 2012Q3

REPORT INFORMATION
  Report Type: 
  Country: None (occurrence: None)
  Receive Date: 20120716
  Receipt Date: 20120620
  Transmission Date: 20120928
  Serious: Yes (Other)
  Sender: FDA-Public Use
  Company Number: JP-009507513-1207JPN004247

PATIENT

DRUGS (8)
  1. MECOBALAMIN [Concomitant]
     Indication: NEUROPATHY PERIPHERAL
     Dosage: 500
     Route: 048
     Dates: start: 20090909
  2. OPAPROSMON [Concomitant]
     Indication: SPINAL COLUMN STENOSIS
     Dosage: 5
     Route: 048
     Dates: start: 20090909
  3. ATORVASTATIN [Concomitant]
     Indication: HYPERCHOLESTEROLAEMIA
     Route: 048
     Dates: start: 20090909
  4. ZETIA [Suspect]
     Indication: HYPERCHOLESTEROLAEMIA
     Route: 048
     Dates: start: 20120616, end: 20120620
  5. MICAMLO [Concomitant]
     Indication: HYPERTENSION
     Dosage: THE DIVIDED DOSE FREQUENCY IS UNCERTAIN.
     Route: 048
     Dates: start: 20090909
  6. METFORMIN HCL [Concomitant]
     Indication: DIABETES MELLITUS
     Route: 048
     Dates: start: 20090909
  7. OMEPRAZOLE [Concomitant]
     Indication: GASTROOESOPHAGEAL REFLUX DISEASE
     Route: 048
     Dates: start: 20090909
  8. BONOTEO [Concomitant]
     Indication: OSTEOPOROSIS
     Dosage: THE DIVIDED DOSE AMOUNT IS UNCERTAIN.
     Route: 048
     Dates: start: 20090909

REACTIONS (2)
  - ERYTHEMA [None]
  - RASH [None]
